FAERS Safety Report 22618925 (Version 1)
Quarter: 2023Q2

REPORT INFORMATION
  Report Type: Report from Study
  Country: US (occurrence: US)
  Receive Date: 20230620
  Receipt Date: 20230620
  Transmission Date: 20230721
  Serious: No
  Sender: FDA-Public Use
  Company Number: US-ETON PHARMACEUTICALS, INC-2023ETO000119

PATIENT

DRUGS (2)
  1. ALKINDI SPRINKLE [Suspect]
     Active Substance: HYDROCORTISONE
     Indication: Adrenogenital syndrome
     Dosage: 1 MILLIGRAM, TID
     Route: 048
     Dates: start: 20230522, end: 202306
  2. ALKINDI SPRINKLE [Suspect]
     Active Substance: HYDROCORTISONE
     Dosage: 0.5 MILLIGRAM, TID
     Route: 048
     Dates: start: 20230522, end: 202306

REACTIONS (3)
  - Infantile spitting up [Unknown]
  - Product use complaint [Unknown]
  - Incorrect dose administered [Unknown]
